FAERS Safety Report 25147644 (Version 2)
Quarter: 2025Q2

REPORT INFORMATION
  Report Type: Spontaneous
  Country: FR (occurrence: FR)
  Receive Date: 20250402
  Receipt Date: 20250428
  Transmission Date: 20250716
  Serious: Yes (Other)
  Sender: JOHNSON AND JOHNSON
  Company Number: FR-AFSSAPS-BX2025000412

PATIENT
  Age: 73 Year
  Sex: Male
  Weight: 68 kg

DRUGS (6)
  1. RYBREVANT [Suspect]
     Active Substance: AMIVANTAMAB-VMJW
     Indication: Bronchial carcinoma
     Route: 041
     Dates: start: 20250225, end: 20250225
  2. ONDANSETRON [Concomitant]
     Active Substance: ONDANSETRON
  3. POLARAMINE [Concomitant]
     Active Substance: DEXCHLORPHENIRAMINE MALEATE
  4. CARBOPLATIN [Concomitant]
     Active Substance: CARBOPLATIN
  5. PEMETREXED [Concomitant]
     Active Substance: PEMETREXED
  6. METHYLPREDNISOLONE [Concomitant]
     Active Substance: METHYLPREDNISOLONE

REACTIONS (5)
  - Type I hypersensitivity [Recovered/Resolved]
  - Infusion related reaction [Recovered/Resolved]
  - Loss of consciousness [Recovered/Resolved]
  - Hypotension [Recovered/Resolved]
  - Pyrexia [Recovered/Resolved]

NARRATIVE: CASE EVENT DATE: 20250225
